FAERS Safety Report 9672216 (Version 1)
Quarter: 2013Q4

REPORT INFORMATION
  Report Type: Spontaneous
  Country: US (occurrence: US)
  Receive Date: 20131106
  Receipt Date: 20131106
  Transmission Date: 20140711
  Serious: No
  Sender: FDA-Public Use
  Company Number: US-ENDO PHARMACEUTICALS INC.-HCDA20120004

PATIENT
  Sex: Female

DRUGS (5)
  1. HYDROCODONE/ACETAMINOPHEN 10MG/325MG [Suspect]
     Indication: SPINAL PAIN
     Dosage: 10MG/325MG
     Route: 048
     Dates: start: 2007
  2. HYDROCODONE/ACETAMINOPHEN 10MG/325MG [Suspect]
     Indication: FIBROMYALGIA
  3. HYDROCODONE/ACETAMINOPHEN 10MG/325MG [Suspect]
     Indication: PAIN IN EXTREMITY
  4. BUFFERIN [Suspect]
     Indication: PRODUCT USED FOR UNKNOWN INDICATION
     Dosage: UNKNOWN
     Route: 048
  5. EXCEDRIN [Suspect]
     Indication: PRODUCT USED FOR UNKNOWN INDICATION
     Dosage: UNKNOWN
     Route: 048

REACTIONS (1)
  - Drug screen positive [Unknown]
